FAERS Safety Report 7432288-7 (Version None)
Quarter: 2011Q2

REPORT INFORMATION
  Report Type: 
  Country: None (occurrence: None)
  Receive Date: 20110422
  Receipt Date: 20110418
  Transmission Date: 20111010
  Serious: Yes (Hospitalization, Disabling, Other)
  Sender: FDA-Public Use
  Company Number: JP-ABBOTT-10P-087-0679182-00

PATIENT
  Sex: Male
  Weight: 58.2 kg

DRUGS (18)
  1. PREDNISOLONE [Suspect]
     Dosage: 6MG DAILY
     Route: 048
     Dates: start: 20091110, end: 20091207
  2. PYRIDOXAL PHOSPHATE HYDRATE [Concomitant]
     Indication: ADVERSE REACTION
  3. LIMAPROST ALFADEX [Concomitant]
     Indication: LUMBAR SPINAL STENOSIS
  4. PYRIDOXAL PHOSPHATE HYDRATE [Concomitant]
     Indication: ANTIBIOTIC PROPHYLAXIS
     Route: 048
     Dates: start: 20091124
  5. PREDNISOLONE [Suspect]
     Indication: RHEUMATOID ARTHRITIS
     Dosage: 8MG DAILY
     Route: 048
     Dates: end: 20091013
  6. PREDNISOLONE [Suspect]
     Dosage: 5MG DAILY
     Route: 048
     Dates: start: 20091208, end: 20091228
  7. LANSOPRAZOLE [Concomitant]
     Indication: PROPHYLAXIS AGAINST GASTROINTESTINAL ULCER
     Route: 048
     Dates: start: 20091124
  8. ISONIAZID [Concomitant]
     Indication: ANTIBIOTIC PROPHYLAXIS
     Route: 048
     Dates: start: 20091124
  9. PYRIDOXAL PHOSPHATE HYDRATE [Concomitant]
     Indication: PROPHYLAXIS
  10. LIMAPROST ALFADEX [Concomitant]
     Indication: HYPOAESTHESIA
     Route: 048
     Dates: start: 20091124
  11. PREDNISOLONE [Suspect]
     Dosage: 5MG DAILY
     Route: 048
     Dates: start: 20100712
  12. CELECOXIB [Concomitant]
     Indication: RHEUMATOID ARTHRITIS
     Dosage: 200MG DAILY
     Route: 048
     Dates: start: 20091124
  13. MINODRONIC ACID HYDRATE [Concomitant]
     Indication: OSTEOPOROSIS PROPHYLAXIS
     Route: 048
     Dates: start: 20091124
  14. HUMIRA [Suspect]
     Indication: RHEUMATOID ARTHRITIS
     Route: 058
     Dates: start: 20091013, end: 20101004
  15. METHOTREXATE [Concomitant]
     Indication: RHEUMATOID ARTHRITIS
     Dosage: 4MG PER WEEK
     Route: 048
  16. SULFAMETHOXAZOLE W/TRIMETHOPRIM [Concomitant]
     Indication: ANTIFUNGAL PROPHYLAXIS
     Dosage: 1 DOSAGE FORM DAILY
     Route: 048
     Dates: start: 20091124, end: 20101122
  17. PREDNISOLONE [Suspect]
     Dosage: 7MG DAILY
     Route: 048
     Dates: start: 20091014, end: 20091109
  18. PREDNISOLONE [Suspect]
     Dosage: 6MG DAILY
     Route: 048
     Dates: start: 20091229, end: 20100712

REACTIONS (3)
  - SPINAL COMPRESSION FRACTURE [None]
  - PERIPHERAL SENSORY NEUROPATHY [None]
  - PARALYSIS [None]
